FAERS Safety Report 4845376-6 (Version None)
Quarter: 2005Q4

REPORT INFORMATION
  Report Type: 
  Country: None (occurrence: None)
  Receive Date: 20051125
  Receipt Date: 20051114
  Transmission Date: 20060501
  Serious: Yes (Other)
  Sender: FDA-Public Use
  Company Number: DE200511000201

PATIENT
  Age: 55 Year
  Sex: Male

DRUGS (8)
  1. CYMBALTA [Suspect]
     Indication: SCHIZOAFFECTIVE DISORDER
     Dosage: 60 MG, DAILY (1/D), ORAL
     Route: 048
     Dates: start: 20050505, end: 20050711
  2. CLOZAPINE [Concomitant]
  3. SOLIAN/FRA/ [Concomitant]
  4. (AMISULPRIDE) [Concomitant]
  5. JENAPROFEN (IBUPROFEN) [Concomitant]
  6. NEXIUM/UNK/(ESOMEPRAZOLE) [Concomitant]
  7. AKINETON-1 (BIPERIDINE LACTATE) [Concomitant]
  8. GODAMED (ACETYLSALICYLIC ACID, AMINOACETIC ACID) [Concomitant]

REACTIONS (1)
  - PANCREATITIS [None]
